FAERS Safety Report 21344663 (Version 1)
Quarter: 2022Q3

REPORT INFORMATION
  Report Type: Report from Study
  Country: MX (occurrence: MX)
  Receive Date: 20220916
  Receipt Date: 20220916
  Transmission Date: 20221027
  Serious: Yes (Other)
  Sender: FDA-Public Use
  Company Number: MX-NALPROPION PHARMACEUTICALS INC.-MX-2022CUR022842

PATIENT
  Age: 56 Year
  Sex: Female

DRUGS (7)
  1. BUPROPION HYDROCHLORIDE\NALTREXONE HYDROCHLORIDE [Suspect]
     Active Substance: BUPROPION HYDROCHLORIDE\NALTREXONE HYDROCHLORIDE
     Indication: Overweight
     Dosage: 8 MG/90 MG (1 DF,1 IN 1 D)
     Route: 048
     Dates: start: 20220704
  2. BUPROPION HYDROCHLORIDE\NALTREXONE HYDROCHLORIDE [Suspect]
     Active Substance: BUPROPION HYDROCHLORIDE\NALTREXONE HYDROCHLORIDE
     Dosage: 8 MG/90 MG (2 DF,TWO IN THE MORNING AND TWO AT NIGHT)
     Route: 048
  3. BUPROPION HYDROCHLORIDE\NALTREXONE HYDROCHLORIDE [Suspect]
     Active Substance: BUPROPION HYDROCHLORIDE\NALTREXONE HYDROCHLORIDE
     Dosage: 4 DF,1 IN 1 D
     Route: 048
  4. CALCIUM CARBONATE;RISEDRONIC ACID [Concomitant]
     Indication: Product used for unknown indication
     Dosage: UNK
  5. ALEVIAN DUO [PINAVERIUM BROMIDE;SIMETICONE] [Concomitant]
     Indication: Gastritis
     Dosage: UNK
  6. HISTOFIL [Concomitant]
     Indication: Product used for unknown indication
     Dosage: UNK
  7. RALOXIFENE [Concomitant]
     Active Substance: RALOXIFENE
     Indication: Product used for unknown indication
     Dosage: UNK

REACTIONS (5)
  - Spinal cord herniation [Not Recovered/Not Resolved]
  - Discomfort [Unknown]
  - Musculoskeletal discomfort [Not Recovered/Not Resolved]
  - Arthralgia [Unknown]
  - Groin pain [Not Recovered/Not Resolved]

NARRATIVE: CASE EVENT DATE: 20220829
